FAERS Safety Report 7693370-2 (Version None)
Quarter: 2011Q3

REPORT INFORMATION
  Report Type: 
  Country: None (occurrence: None)
  Receive Date: 20110819
  Receipt Date: 20110808
  Transmission Date: 20111222
  Serious: Yes (Other)
  Sender: FDA-Public Use
  Company Number: BR-US-EMD SERONO, INC.-7076440

PATIENT
  Sex: Female

DRUGS (4)
  1. REBIF [Suspect]
     Indication: PRODUCT USED FOR UNKNOWN INDICATION
     Dates: start: 20100623, end: 20110508
  2. ULTRASET [Concomitant]
  3. FEMOSTON CONTI [Concomitant]
  4. LYRICA [Concomitant]

REACTIONS (1)
  - PARALYSIS [None]
